FAERS Safety Report 12711503 (Version 1)
Quarter: 2016Q3

REPORT INFORMATION
  Report Type: Spontaneous
  Country: US (occurrence: US)
  Receive Date: 20160902
  Receipt Date: 20160902
  Transmission Date: 20161109
  Serious: No
  Sender: FDA-Public Use
  Company Number: US-PFIZER INC-2016409741

PATIENT
  Age: 69 Year
  Sex: Female
  Weight: 64.41 kg

DRUGS (1)
  1. HYDROMORPHONE HYDROCHLORIDE. [Suspect]
     Active Substance: HYDROMORPHONE HYDROCHLORIDE
     Indication: NERVE INJURY
     Dosage: UNK
     Dates: start: 201512

REACTIONS (1)
  - Drug ineffective [Unknown]
